FAERS Safety Report 9333633 (Version 1)
Quarter: 2013Q2

REPORT INFORMATION
  Report Type: Spontaneous
  Country: US (occurrence: US)
  Receive Date: 20130606
  Receipt Date: 20130606
  Transmission Date: 20140414
  Serious: No
  Sender: FDA-Public Use
  Company Number: US-AMGEN-USASP2012078546

PATIENT
  Age: 62 Year
  Sex: Female
  Weight: 52.15 kg

DRUGS (8)
  1. PROLIA [Suspect]
     Indication: OSTEOPOROSIS POSTMENOPAUSAL
     Dosage: UNK UNK, ONE TIME DOSE
     Route: 030
     Dates: start: 20121119, end: 20121119
  2. VITAMINS [Concomitant]
     Dosage: UNK
  3. ANALGESICS [Concomitant]
     Indication: PAIN
     Dosage: UNK
  4. DIAZEPAM [Concomitant]
     Indication: ANXIETY
     Dosage: 10 MG, TID
     Route: 048
  5. DOXEPIN [Concomitant]
     Indication: INSOMNIA
     Dosage: 10 MG, QHS
     Route: 048
     Dates: start: 20120405
  6. EVISTA [Concomitant]
     Indication: OSTEOPOROSIS
     Dosage: 60 MG, QD
     Route: 048
     Dates: start: 20120112
  7. GABAPENTIN [Concomitant]
     Indication: PAIN
     Dosage: 300 MG, QHS
     Route: 048
     Dates: start: 20110728
  8. MS CONTIN [Concomitant]
     Indication: PAIN
     Dosage: 100 MG, TID
     Route: 048

REACTIONS (2)
  - Alopecia [Not Recovered/Not Resolved]
  - Incorrect route of drug administration [Unknown]
